FAERS Safety Report 17348199 (Version 1)
Quarter: 2020Q1

REPORT INFORMATION
  Report Type: Spontaneous
  Country: US (occurrence: US)
  Receive Date: 20200130
  Receipt Date: 20200130
  Transmission Date: 20200409
  Serious: Yes (Other)
  Sender: FDA-Public Use
  Company Number: US-PFIZER INC-2019054496

PATIENT
  Age: 68 Year
  Sex: Female
  Weight: 88 kg

DRUGS (3)
  1. IBRANCE [Suspect]
     Active Substance: PALBOCICLIB
     Dosage: 25 MG, CYCLIC, [3 WKS ON; 1 WK OFF]
     Dates: start: 2016
  2. IBRANCE [Suspect]
     Active Substance: PALBOCICLIB
     Dosage: 125 MG, CYCLIC (125 MG. ONE CAPSULE DAILY FOR 21 DAYS AND THEN 7 DAYS OFF.)
  3. IBRANCE [Suspect]
     Active Substance: PALBOCICLIB
     Indication: BREAST CANCER METASTATIC
     Dosage: 125 MG, UNK

REACTIONS (2)
  - Malaise [Recovering/Resolving]
  - Diverticulitis [Recovered/Resolved]

NARRATIVE: CASE EVENT DATE: 2018
